FAERS Safety Report 21219179 (Version 3)
Quarter: 2024Q2

REPORT INFORMATION
  Report Type: Report from Study
  Country: DK (occurrence: DK)
  Receive Date: 20220816
  Receipt Date: 20240604
  Transmission Date: 20240715
  Serious: Yes (Death, Other)
  Sender: FDA-Public Use
  Company Number: DK-CELLTRION INC.-2022DK013003

PATIENT

DRUGS (3)
  1. RITUXIMAB [Suspect]
     Active Substance: RITUXIMAB
     Indication: Mantle cell lymphoma
     Dosage: UNK
     Route: 065
  2. LENALIDOMIDE [Suspect]
     Active Substance: LENALIDOMIDE
     Indication: Mantle cell lymphoma
     Dosage: UNK
     Route: 065
  3. VENETOCLAX [Suspect]
     Active Substance: VENETOCLAX
     Indication: Mantle cell lymphoma
     Dosage: UNK
     Route: 048

REACTIONS (8)
  - Hemianopia homonymous [Fatal]
  - Neurological decompensation [Fatal]
  - Cognitive disorder [Fatal]
  - Visual impairment [Fatal]
  - Disease recurrence [Unknown]
  - Progressive multifocal leukoencephalopathy [Fatal]
  - Infection in an immunocompromised host [Fatal]
  - Intentional product use issue [Unknown]
